FAERS Safety Report 8154547-5 (Version None)
Quarter: 2012Q1

REPORT INFORMATION
  Report Type: 
  Country: None (occurrence: None)
  Receive Date: 20120215
  Receipt Date: 20120130
  Transmission Date: 20120608
  Serious: Yes (Death)
  Sender: FDA-Public Use
  Company Number: US-LHC-2012003

PATIENT
  Sex: Female

DRUGS (1)
  1. OXYGEN USP (OXYGEN) (GAS FOR INHALATION) (VERUM) [Suspect]
     Indication: PRODUCT USED FOR UNKNOWN INDICATION
     Dosage: 11L/MIN, CONTINUOUS, CONTINUOUS, INHALATION
     Route: 055
     Dates: start: 20120123, end: 20120130

REACTIONS (1)
  - DEATH [None]
